FAERS Safety Report 7979787-7 (Version None)
Quarter: 2011Q4

REPORT INFORMATION
  Report Type: 
  Country: None (occurrence: None)
  Receive Date: 20111214
  Receipt Date: 20111208
  Transmission Date: 20120403
  Serious: Yes (Death, Other)
  Sender: FDA-Public Use
  Company Number: GB-ROCHE-1013960

PATIENT
  Sex: Male

DRUGS (3)
  1. BISOPROLOL FUMARATE [Concomitant]
     Route: 065
  2. ISOSORBIDE MONONITRATE [Concomitant]
     Route: 065
     Dates: start: 20100401
  3. LUCENTIS [Suspect]
     Indication: CHOROIDAL NEOVASCULARISATION
     Route: 050
     Dates: start: 20090718

REACTIONS (3)
  - DYSPNOEA EXERTIONAL [None]
  - DEATH [None]
  - HYPERTENSION [None]
